FAERS Safety Report 4360612-0 (Version None)
Quarter: 2004Q2

REPORT INFORMATION
  Report Type: 
  Country: None (occurrence: None)
  Receive Date: 20040519
  Receipt Date: 20040510
  Transmission Date: 20050107
  Serious: Yes (Death)
  Sender: FDA-Public Use
  Company Number: LB-MERCK-0405USA00890

PATIENT
  Age: 77 Year
  Sex: Male

DRUGS (5)
  1. ASPIRIN [Concomitant]
     Route: 065
     Dates: start: 20040403, end: 20040404
  2. DOBUTREX [Concomitant]
     Route: 065
     Dates: start: 20040403, end: 20040404
  3. HEPARIN [Concomitant]
     Route: 042
     Dates: start: 20040403, end: 20040404
  4. LENITRAL [Concomitant]
     Route: 042
     Dates: start: 20040403, end: 20040404
  5. ZOCOR [Suspect]
     Route: 048
     Dates: start: 20040403, end: 20040404

REACTIONS (2)
  - MYOCARDIAL INFARCTION [None]
  - PULMONARY OEDEMA [None]
